FAERS Safety Report 16567750 (Version 1)
Quarter: 2019Q3

REPORT INFORMATION
  Report Type: Spontaneous
  Country: DE (occurrence: DE)
  Receive Date: 20190712
  Receipt Date: 20190712
  Transmission Date: 20191004
  Serious: Yes (Hospitalization)
  Sender: FDA-Public Use
  Company Number: DE-TEVA-2019-DE-1075918

PATIENT
  Age: 53 Year
  Sex: Female

DRUGS (1)
  1. COTRIM [Suspect]
     Active Substance: SULFAMETHOXAZOLE\TRIMETHOPRIM
     Dosage: NK MG
     Route: 065

REACTIONS (4)
  - Urticaria [Unknown]
  - Tachycardia [Unknown]
  - Chills [Unknown]
  - Hypotension [Unknown]
